FAERS Safety Report 6522616-9 (Version None)
Quarter: 2009Q4

REPORT INFORMATION
  Report Type: 
  Country: None (occurrence: None)
  Receive Date: 20091230
  Receipt Date: 20091125
  Transmission Date: 20100525
  Serious: Yes (Hospitalization)
  Sender: FDA-Public Use
  Company Number: AR-PFIZER INC-2009294709

PATIENT
  Age: 61 Year
  Sex: Female

DRUGS (5)
  1. AZULFIDINE [Suspect]
     Indication: COLITIS ULCERATIVE
     Dosage: 500 MG, 4X/DAY
     Route: 048
     Dates: start: 19990101, end: 20091110
  2. LOPERAMIDE [Concomitant]
     Dosage: UNK
     Route: 048
  3. TEGRETOL [Concomitant]
     Dosage: UNK
     Route: 048
  4. TRYPTANOL [Concomitant]
     Dosage: UNK
     Route: 048
  5. CLONAZEPAM [Concomitant]
     Dosage: UNK
     Route: 048

REACTIONS (7)
  - BLOOD PRESSURE DECREASED [None]
  - DEHYDRATION [None]
  - DIARRHOEA [None]
  - DRUG INEFFECTIVE [None]
  - POISONING [None]
  - VOMITING [None]
  - WEIGHT DECREASED [None]
